FAERS Safety Report 16204375 (Version 1)
Quarter: 2019Q2

REPORT INFORMATION
  Report Type: Spontaneous
  Country: UA (occurrence: UA)
  Receive Date: 20190416
  Receipt Date: 20190416
  Transmission Date: 20190711
  Serious: Yes (Other)
  Sender: FDA-Public Use
  Company Number: UA-FRESENIUS KABI-FK201904263

PATIENT
  Age: 33 Year
  Sex: Female

DRUGS (1)
  1. PROGESTERONE INJECTION USP [Suspect]
     Active Substance: PROGESTERONE
     Indication: PROPHYLAXIS
     Route: 065
     Dates: start: 2012, end: 2012

REACTIONS (6)
  - Myalgia [Recovered/Resolved]
  - Asphyxia [Recovered/Resolved]
  - Abortion spontaneous [Recovered/Resolved]
  - Product use in unapproved indication [Recovered/Resolved]
  - Muscle contractions involuntary [Recovered/Resolved]
  - Exposure during pregnancy [Recovered/Resolved]

NARRATIVE: CASE EVENT DATE: 2012
